FAERS Safety Report 6543424-9 (Version None)
Quarter: 2010Q1

REPORT INFORMATION
  Report Type: 
  Country: None (occurrence: None)
  Receive Date: 20100114
  Receipt Date: 20090624
  Transmission Date: 20100710
  Serious: Yes (Hospitalization)
  Sender: FDA-Public Use
  Company Number: 640163

PATIENT
  Sex: Female

DRUGS (4)
  1. FLUMAZENIL [Suspect]
     Indication: DRUG USE FOR UNKNOWN INDICATION
  2. DIAZEPAM [Suspect]
     Indication: GRAND MAL CONVULSION
     Dosage: INTRAVENOUS
     Route: 042
  3. LORAZEPAM [Suspect]
     Indication: GRAND MAL CONVULSION
  4. PHENOBARBITAL TAB [Suspect]

REACTIONS (1)
  - CONVULSION [None]
